FAERS Safety Report 8506006-5 (Version None)
Quarter: 2012Q3

REPORT INFORMATION
  Report Type: 
  Country: None (occurrence: None)
  Receive Date: 20120712
  Receipt Date: 20120625
  Transmission Date: 20120928
  Serious: Yes (Hospitalization)
  Sender: FDA-Public Use
  Company Number: DE-GLAXOSMITHKLINE-D0076087A

PATIENT
  Sex: Female
  Weight: 74 kg

DRUGS (5)
  1. VOTRIENT [Suspect]
     Indication: METASTATIC RENAL CELL CARCINOMA
     Dosage: 400MG TWICE PER DAY
     Route: 048
     Dates: start: 20120410
  2. NORVASC [Concomitant]
     Dosage: 5MG TWICE PER DAY
     Route: 048
     Dates: start: 20120101
  3. DIOVAN [Concomitant]
     Dosage: 80MG PER DAY
     Route: 048
     Dates: start: 20120101
  4. MOTILIUM [Concomitant]
     Dosage: 10MG THREE TIMES PER DAY
     Route: 048
     Dates: start: 20120101
  5. LEVOTHYROXINE SODIUM [Concomitant]
     Dosage: 100UG PER DAY
     Route: 048
     Dates: start: 20120101

REACTIONS (9)
  - GASTRITIS [None]
  - TRANSAMINASES INCREASED [None]
  - NAUSEA [None]
  - OESOPHAGEAL CANDIDIASIS [None]
  - HAEMOPTYSIS [None]
  - DECREASED APPETITE [None]
  - GASTROINTESTINAL ANGIODYSPLASIA [None]
  - HAEMATEMESIS [None]
  - VOMITING [None]
